FAERS Safety Report 11176952 (Version 1)
Quarter: 2015Q2

REPORT INFORMATION
  Report Type: Report from Study
  Country: US (occurrence: US)
  Receive Date: 20150610
  Receipt Date: 20150610
  Transmission Date: 20150821
  Serious: Yes (Death, Life-Threatening, Other)
  Sender: FDA-Public Use
  Company Number: US-ROCHE-1561813

PATIENT

DRUGS (1)
  1. RITUXIMAB [Suspect]
     Active Substance: RITUXIMAB
     Indication: PROPHYLAXIS AGAINST TRANSPLANT REJECTION
     Dosage: DATE OF MOST RECENT INFUSION: 31/MAY/2013?DATE OF DROPOUT: 20/MAR/2014
     Route: 065

REACTIONS (4)
  - Transplant rejection [Fatal]
  - Hyperglycaemia [Recovered/Resolved]
  - Wound infection [Recovered/Resolved]
  - Intra-abdominal haematoma [Recovered/Resolved]

NARRATIVE: CASE EVENT DATE: 20130531
